FAERS Safety Report 8816907 (Version 1)
Quarter: 2012Q4

REPORT INFORMATION
  Report Type: Spontaneous
  Country: US (occurrence: None)
  Receive Date: 20121002
  Receipt Date: 20121002
  Transmission Date: 20130627
  Serious: Yes (Other)
  Sender: FDA-Public Use
  Company Number: None

PATIENT
  Age: 53 Year
  Sex: Female
  Weight: 55.34 kg

DRUGS (1)
  1. BOTOX [Suspect]
     Indication: WRINKLES
     Dates: start: 20120922, end: 20120922

REACTIONS (2)
  - Decreased activity [None]
  - Incorrect dose administered [None]
